FAERS Safety Report 10298765 (Version 1)
Quarter: 2014Q3

REPORT INFORMATION
  Report Type: Spontaneous
  Country: FR (occurrence: FR)
  Receive Date: 20140711
  Receipt Date: 20140711
  Transmission Date: 20150326
  Serious: Yes (Hospitalization)
  Sender: FDA-Public Use
  Company Number: FR-SA-2014SA088714

PATIENT
  Age: 69 Year
  Sex: Male

DRUGS (6)
  1. CALCIUM LEVOFOLINATE [Suspect]
     Active Substance: LEVOLEUCOVORIN CALCIUM
     Indication: CARCINOID TUMOUR OF THE SMALL BOWEL
     Route: 042
     Dates: start: 20080929
  2. ZOPHREN [Suspect]
     Active Substance: ONDANSETRON
     Indication: CARCINOID TUMOUR OF THE SMALL BOWEL
     Dosage: FREQUENCY: 2 IN 1 CYCLE.
     Route: 042
     Dates: start: 20080929
  3. AVASTIN [Suspect]
     Active Substance: BEVACIZUMAB
     Indication: CARCINOID TUMOUR OF THE SMALL BOWEL
     Route: 042
     Dates: start: 20080929
  4. FLUOROURACIL. [Suspect]
     Active Substance: FLUOROURACIL
     Indication: CARCINOID TUMOUR OF THE SMALL BOWEL
     Route: 042
     Dates: start: 20080929
  5. OXALIPLATIN. [Suspect]
     Active Substance: OXALIPLATIN
     Indication: SMALL INTESTINE CARCINOMA
     Route: 042
     Dates: start: 20080929
  6. SOLU-MEDROL [Suspect]
     Active Substance: METHYLPREDNISOLONE SODIUM SUCCINATE
     Indication: CARCINOID TUMOUR OF THE SMALL BOWEL
     Route: 042
     Dates: start: 20080929

REACTIONS (2)
  - Encephalopathy [Recovered/Resolved]
  - Confusional state [Recovered/Resolved]

NARRATIVE: CASE EVENT DATE: 20081001
